FAERS Safety Report 9250833 (Version 1)
Quarter: 2013Q2

REPORT INFORMATION
  Report Type: Report from Study
  Country: BR (occurrence: BR)
  Receive Date: 20130424
  Receipt Date: 20130424
  Transmission Date: 20140414
  Serious: Yes (Other)
  Sender: FDA-Public Use
  Company Number: PHHY2013BR039345

PATIENT
  Sex: Male
  Weight: 67 kg

DRUGS (2)
  1. GILENYA [Suspect]
     Indication: MULTIPLE SCLEROSIS
     Dosage: 0.5 MG, QD
     Route: 048
     Dates: start: 20130222
  2. CHOLECALCIFEROL [Concomitant]
     Indication: VITAMIN D DEFICIENCY
     Route: 048

REACTIONS (3)
  - Gait disturbance [Recovering/Resolving]
  - Muscular weakness [Recovering/Resolving]
  - Pruritus [Recovering/Resolving]
